FAERS Safety Report 7731136-5 (Version None)
Quarter: 2011Q3

REPORT INFORMATION
  Report Type: 
  Country: None (occurrence: None)
  Receive Date: 20110906
  Receipt Date: 20110906
  Transmission Date: 20111222
  Serious: Yes (Other)
  Sender: FDA-Public Use
  Company Number: None

PATIENT
  Age: 41 Year
  Sex: Female
  Weight: 84.821 kg

DRUGS (1)
  1. LYRICA [Suspect]
     Indication: FIBROMYALGIA
     Dosage: 150 MG
     Route: 048
     Dates: start: 20110822, end: 20110828

REACTIONS (14)
  - VISION BLURRED [None]
  - MANIA [None]
  - DIZZINESS [None]
  - AMNESIA [None]
  - WEIGHT INCREASED [None]
  - ALOPECIA [None]
  - DRY MOUTH [None]
  - BLOOD GLUCOSE INCREASED [None]
  - FEELING DRUNK [None]
  - IMPAIRED DRIVING ABILITY [None]
  - GAIT DISTURBANCE [None]
  - DISTURBANCE IN ATTENTION [None]
  - EUPHORIC MOOD [None]
  - HUNGER [None]
